FAERS Safety Report 8650326 (Version 3)
Quarter: 2015Q2

REPORT INFORMATION
  Report Type: Spontaneous
  Country: GB (occurrence: GB)
  Receive Date: 20120705
  Receipt Date: 20150612
  Transmission Date: 20150821
  Serious: Yes (Death, Hospitalization, Disabling, Other)
  Sender: FDA-Public Use
  Company Number: GB-B.I. PHARMACEUTICALS,INC./RIDGEFIELD-2012-UK-00860UK

PATIENT
  Sex: Female
  Weight: 45 kg

DRUGS (1)
  1. PRADAXA [Suspect]
     Active Substance: DABIGATRAN ETEXILATE MESYLATE
     Indication: ATRIAL FIBRILLATION
     Dosage: 220 MG
     Route: 048
     Dates: start: 201204, end: 20120620

REACTIONS (7)
  - Hip fracture [Unknown]
  - Renal impairment [Unknown]
  - Immobilisation prolonged [Unknown]
  - Fall [Unknown]
  - Renal function test abnormal [Unknown]
  - Bronchopneumonia [Fatal]
  - Coagulopathy [Unknown]
